FAERS Safety Report 18940455 (Version 1)
Quarter: 2021Q1

REPORT INFORMATION
  Report Type: Spontaneous
  Country: US (occurrence: US)
  Receive Date: 20210225
  Receipt Date: 20210225
  Transmission Date: 20210420
  Serious: Yes (Hospitalization)
  Sender: FDA-Public Use
  Company Number: US-MYLANLABS-2021M1011442

PATIENT
  Age: 69 Year
  Sex: Female

DRUGS (1)
  1. BUPIVACAINE. [Suspect]
     Active Substance: BUPIVACAINE
     Indication: SPINAL ANAESTHESIA
     Dosage: 1.6 MILLILITER(AT L3?L4)

REACTIONS (1)
  - Meningitis chemical [Recovering/Resolving]
